FAERS Safety Report 7365797-X (Version None)
Quarter: 2011Q1

REPORT INFORMATION
  Report Type: 
  Country: None (occurrence: None)
  Receive Date: 20110322
  Receipt Date: 20110309
  Transmission Date: 20110831
  Serious: Yes (Death)
  Sender: FDA-Public Use
  Company Number: US-CELGENEUS-163-21880-11012192

PATIENT
  Sex: Male
  Weight: 86.18 kg

DRUGS (6)
  1. PRAVASTATIN [Concomitant]
     Dosage: 40 MILLIGRAM
     Route: 065
  2. AMLODIPINE [Concomitant]
     Dosage: 5 MILLIGRAM
     Route: 065
  3. ASPIRIN [Concomitant]
     Dosage: 81 MILLIGRAM
     Route: 065
  4. HYDROCHLOROTHIAZIDE [Concomitant]
     Dosage: 25 MILLIGRAM
     Route: 065
  5. REVLIMID [Suspect]
     Indication: MULTIPLE MYELOMA
     Dosage: 10 MILLIGRAM
     Route: 048
     Dates: start: 20101105, end: 20110114
  6. METOPROLOL TARTRATE [Concomitant]
     Dosage: 50 MILLIGRAM
     Route: 065

REACTIONS (1)
  - DEATH [None]
